FAERS Safety Report 21676336 (Version 1)
Quarter: 2022Q4

REPORT INFORMATION
  Report Type: Spontaneous
  Country: IT (occurrence: IT)
  Receive Date: 20221202
  Receipt Date: 20221202
  Transmission Date: 20230113
  Serious: Yes (Other)
  Sender: FDA-Public Use
  Company Number: IT-PFIZER INC-PV202200114882

PATIENT
  Sex: Male

DRUGS (1)
  1. INFLIXIMAB [Suspect]
     Active Substance: INFLIXIMAB
     Dosage: UNK
     Route: 065

REACTIONS (4)
  - Diarrhoea haemorrhagic [Unknown]
  - Colitis ulcerative [Unknown]
  - Inflammation [Unknown]
  - Condition aggravated [Unknown]
